FAERS Safety Report 13801653 (Version 2)
Quarter: 2017Q4

REPORT INFORMATION
  Report Type: Spontaneous
  Country: US (occurrence: US)
  Receive Date: 20170727
  Receipt Date: 20171116
  Transmission Date: 20180320
  Serious: No
  Sender: FDA-Public Use
  Company Number: US-ASTRAZENECA-2017SE76678

PATIENT
  Age: 57 Year
  Sex: Male
  Weight: 61.2 kg

DRUGS (3)
  1. SYMBICORT [Suspect]
     Active Substance: BUDESONIDE\FORMOTEROL FUMARATE DIHYDRATE
     Indication: CHRONIC OBSTRUCTIVE PULMONARY DISEASE
     Dosage: 80/4.5 UG, ONE PUFF TWICE A DAY
     Route: 055
     Dates: start: 2016
  2. ALEVE [Concomitant]
     Active Substance: NAPROXEN SODIUM
  3. VENTALIN [Concomitant]
     Indication: RESPIRATORY THERAPY
     Dosage: AS REQUIRED

REACTIONS (7)
  - Off label use [Unknown]
  - Intentional device misuse [Unknown]
  - Device malfunction [Unknown]
  - Product taste abnormal [Unknown]
  - Drug dose omission [Unknown]
  - Product use issue [Unknown]
  - Dyspnoea [Unknown]

NARRATIVE: CASE EVENT DATE: 2016
